FAERS Safety Report 19292748 (Version 1)
Quarter: 2021Q2

REPORT INFORMATION
  Report Type: Spontaneous
  Country: GB (occurrence: GB)
  Receive Date: 20210524
  Receipt Date: 20210524
  Transmission Date: 20210717
  Serious: Yes (Other)
  Sender: FDA-Public Use
  Company Number: GB-JNJFOC-20210530037

PATIENT
  Sex: Male

DRUGS (1)
  1. PARACETAMOL [Suspect]
     Active Substance: ACETAMINOPHEN
     Indication: PYREXIA
     Dosage: 120MG/5ML
     Route: 048
     Dates: start: 202103

REACTIONS (2)
  - Oropharyngeal pain [Unknown]
  - Product contamination physical [Unknown]

NARRATIVE: CASE EVENT DATE: 202103
